FAERS Safety Report 7180687-3 (Version None)
Quarter: 2010Q4

REPORT INFORMATION
  Report Type: 
  Country: None (occurrence: None)
  Receive Date: 20101221
  Receipt Date: 20101213
  Transmission Date: 20110411
  Serious: Yes (Death)
  Sender: FDA-Public Use
  Company Number: JP-AMGEN-JPNCT2010006078

PATIENT

DRUGS (7)
  1. PANITUMUMAB [Suspect]
     Indication: COLORECTAL CANCER
     Dosage: 6 MG/KG, Q2WK
     Route: 041
     Dates: start: 20100921, end: 20100921
  2. CORTICOSTEROIDS [Concomitant]
     Indication: PROPHYLAXIS
     Route: 065
  3. OXALIPLATIN [Concomitant]
     Indication: COLORECTAL CANCER
     Route: 041
     Dates: start: 20100921, end: 20100923
  4. FLUOROURACIL [Concomitant]
     Indication: COLORECTAL CANCER
     Route: 041
     Dates: start: 20100921, end: 20100923
  5. CALCIUM LEVOFOLINATE [Concomitant]
     Indication: COLORECTAL CANCER
     Dosage: 300 MG, UNK
     Route: 041
     Dates: start: 20100921, end: 20100923
  6. DUROTEP MT PATCH [Concomitant]
     Route: 062
  7. OXINORM [Concomitant]
     Route: 048

REACTIONS (3)
  - COLORECTAL CANCER [None]
  - ELECTROLYTE IMBALANCE [None]
  - MULTI-ORGAN FAILURE [None]
